FAERS Safety Report 21322964 (Version 3)
Quarter: 2022Q3

REPORT INFORMATION
  Report Type: Spontaneous
  Country: DE (occurrence: DE)
  Receive Date: 20220912
  Receipt Date: 20220926
  Transmission Date: 20221026
  Serious: Yes (Life-Threatening, Hospitalization, Other)
  Sender: FDA-Public Use
  Company Number: DE-DCGMA-21195988

PATIENT
  Age: 39 Year
  Sex: Male
  Weight: 91 kg

DRUGS (3)
  1. PANTOPRAZOLE [Suspect]
     Active Substance: PANTOPRAZOLE
     Dosage: 40 MILLIGRAM, QD
     Route: 065
  2. BISOPROLOL FUMARATE [Suspect]
     Active Substance: BISOPROLOL FUMARATE
     Dosage: 5 MILLIGRAM, QD
     Route: 065
  3. VALSARTAN [Suspect]
     Active Substance: VALSARTAN
     Dosage: 160 MILLIGRAM, QD
     Route: 065

REACTIONS (4)
  - C-reactive protein increased [Unknown]
  - Hepatomegaly [Unknown]
  - Acute kidney injury [Unknown]
  - Arthralgia [Unknown]

NARRATIVE: CASE EVENT DATE: 20211001
